FAERS Safety Report 10275811 (Version 3)
Quarter: 2014Q3

REPORT INFORMATION
  Report Type: Report from Study
  Country: US (occurrence: US)
  Receive Date: 20140703
  Receipt Date: 20140901
  Transmission Date: 20150326
  Serious: Yes (Other)
  Sender: FDA-Public Use
  Company Number: PHEH2014US006711

PATIENT
  Age: 55 Year
  Sex: Female
  Weight: 91 kg

DRUGS (4)
  1. GILENYA [Suspect]
     Active Substance: FINGOLIMOD HYDROCHLORIDE
     Indication: MULTIPLE SCLEROSIS
     Dosage: 0.5 MG, QD
     Route: 048
     Dates: start: 20140324
  2. SULINDAC. [Concomitant]
     Active Substance: SULINDAC
     Indication: PAIN
     Dosage: 1 DF, PRN
     Route: 048
     Dates: start: 20130513
  3. MODAFINIL. [Concomitant]
     Active Substance: MODAFINIL
     Indication: HYPERSOMNIA
     Dosage: 200 MG, QD
     Route: 048
     Dates: start: 20131111
  4. DEPLIN [Concomitant]
     Active Substance: LEVOMEFOLATE CALCIUM
     Indication: DEPRESSION
     Dosage: 15 MG, QD
     Route: 048
     Dates: start: 20121127

REACTIONS (10)
  - Pollakiuria [Unknown]
  - Poor quality sleep [Unknown]
  - Pituitary tumour [Not Recovered/Not Resolved]
  - Energy increased [Unknown]
  - Temperature intolerance [Not Recovered/Not Resolved]
  - Asthenia [Unknown]
  - Euphoric mood [Unknown]
  - Diarrhoea [Unknown]
  - Malaise [Unknown]
  - Vision blurred [Unknown]

NARRATIVE: CASE EVENT DATE: 20140324
